FAERS Safety Report 5864195-5 (Version None)
Quarter: 2008Q3

REPORT INFORMATION
  Report Type: 
  Country: None (occurrence: None)
  Receive Date: 20080829
  Receipt Date: 20080804
  Transmission Date: 20090109
  Serious: Yes (Hospitalization)
  Sender: FDA-Public Use
  Company Number: DE-ROCHE-579920

PATIENT
  Age: 64 Year
  Sex: Female

DRUGS (3)
  1. RIVOTRIL [Suspect]
     Indication: DRUG USE FOR UNKNOWN INDICATION
     Route: 065
  2. RIVOTRIL [Suspect]
     Dosage: DOSE REDUCED BY ONE DROP EVERY WEEK
     Route: 065
  3. RIVOTRIL [Suspect]
     Dosage: DOSE INCREASED TO 5 DROPS
     Route: 065

REACTIONS (6)
  - DRUG DEPENDENCE [None]
  - FEELING ABNORMAL [None]
  - HIP SURGERY [None]
  - PARAESTHESIA [None]
  - SKIN DISCOLOURATION [None]
  - WITHDRAWAL SYNDROME [None]
